FAERS Safety Report 5033091-8 (Version None)
Quarter: 2006Q2

REPORT INFORMATION
  Report Type: 
  Country: None (occurrence: None)
  Receive Date: 20060504
  Receipt Date: 20051109
  Transmission Date: 20061013
  Serious: Yes (Hospitalization)
  Sender: FDA-Public Use
  Company Number: PHEH2005US12317

PATIENT
  Age: 76 Year
  Sex: Female

DRUGS (6)
  1. TEGRETOL [Suspect]
     Indication: CONVULSION
     Dosage: 200 MG, TID, ORAL
     Route: 048
     Dates: start: 19880101, end: 20040630
  2. TOPROL-XL [Concomitant]
  3. ASPIRIN (ACETYLSALICYLCIC ACID) [Concomitant]
  4. PEPCID [Concomitant]
  5. DIAZEPAM [Concomitant]
  6. VYTORIN [Concomitant]

REACTIONS (6)
  - ALVEOLITIS ALLERGIC [None]
  - HEPATITIS [None]
  - HYPERSENSITIVITY [None]
  - HYPERTENSION [None]
  - PANCREATITIS [None]
  - VISION BLURRED [None]
